FAERS Safety Report 12668798 (Version 1)
Quarter: 2016Q3

REPORT INFORMATION
  Report Type: Spontaneous
  Country: US (occurrence: US)
  Receive Date: 20160819
  Receipt Date: 20160819
  Transmission Date: 20161109
  Serious: No
  Sender: FDA-Public Use
  Company Number: US-BAYER-2016-156779

PATIENT
  Age: 90 Year
  Sex: Female
  Weight: 57.14 kg

DRUGS (24)
  1. BAYER ASPIRIN [Concomitant]
     Active Substance: ASPIRIN
     Indication: ISCHAEMIC HEART DISEASE PROPHYLAXIS
     Dosage: 1 DF, QD
     Route: 048
  2. AMLODIPINE W/BENAZEPRIL [Concomitant]
     Active Substance: AMLODIPINE BESYLATE\BENAZEPRIL HYDROCHLORIDE
  3. ISOSORBIDE [ISOSORBIDE] [Concomitant]
     Active Substance: ISOSORBIDE
  4. GLIMEPIRIDE. [Concomitant]
     Active Substance: GLIMEPIRIDE
  5. VITAMIN C [Concomitant]
     Active Substance: ASCORBIC ACID
  6. METHANIAZIDE [Concomitant]
     Active Substance: METHANIAZIDE
  7. ALEVE [Suspect]
     Active Substance: NAPROXEN SODIUM
     Indication: BACK PAIN
     Dosage: 1 DF, BID
     Route: 048
  8. SYNTHROID [Concomitant]
     Active Substance: LEVOTHYROXINE SODIUM
  9. OMEGA 3 FISH OIL [Concomitant]
     Active Substance: FISH OIL\OMEGA-3 FATTY ACIDS
  10. CALCIUM [Concomitant]
     Active Substance: CALCIUM
  11. CENTRUM SILVER [Concomitant]
     Active Substance: MINERALS\VITAMINS
  12. COENZYME Q10 [Concomitant]
     Active Substance: UBIDECARENONE
  13. IRON [Concomitant]
     Active Substance: IRON
  14. LANTUS [Concomitant]
     Active Substance: INSULIN GLARGINE
  15. ATENOLOL. [Concomitant]
     Active Substance: ATENOLOL
  16. NOVOLOG [Concomitant]
     Active Substance: INSULIN ASPART
  17. PRAVASTATIN. [Concomitant]
     Active Substance: PRAVASTATIN
  18. MAGNESIUM [MAGNESIUM] [Concomitant]
  19. ADVIL [Concomitant]
     Active Substance: IBUPROFEN
  20. PANTOPRAZOLE [Concomitant]
     Active Substance: PANTOPRAZOLE SODIUM
  21. APIXABAN [Concomitant]
     Active Substance: APIXABAN
  22. ALPHA LIPOIC ACID [Concomitant]
     Active Substance: .ALPHA.-LIPOIC ACID
  23. VITAMIN D3 [Concomitant]
     Active Substance: CHOLECALCIFEROL
  24. METFORMIN [Concomitant]
     Active Substance: METFORMIN HYDROCHLORIDE

REACTIONS (1)
  - Drug ineffective [None]
